FAERS Safety Report 10593309 (Version 1)
Quarter: 2014Q4

REPORT INFORMATION
  Report Type: Spontaneous
  Country: US (occurrence: US)
  Receive Date: 20141119
  Receipt Date: 20141119
  Transmission Date: 20150529
  Serious: No
  Sender: FDA-Public Use
  Company Number: US-SHIRE-US201407550

PATIENT
  Age: 16 Year
  Sex: Male
  Weight: 65.76 kg

DRUGS (1)
  1. PENTASA [Suspect]
     Active Substance: MESALAMINE
     Indication: CROHN^S DISEASE
     Dosage: 4 G, UNKNOWN (PER DAY)
     Route: 048

REACTIONS (2)
  - Off label use [Not Recovered/Not Resolved]
  - Weight increased [Unknown]
